FAERS Safety Report 6261526-1 (Version None)
Quarter: 2009Q3

REPORT INFORMATION
  Report Type: 
  Country: None (occurrence: None)
  Receive Date: 20090702
  Receipt Date: 20090331
  Transmission Date: 20100115
  Serious: No
  Sender: FDA-Public Use
  Company Number: 1000005561

PATIENT
  Age: 93 Year
  Sex: Male

DRUGS (5)
  1. BYSTOLIC [Suspect]
     Indication: HYPERTENSION
     Dosage: 10 MG (10 MG,1 IN 1 D),ORAL
     Route: 048
     Dates: start: 20090301
  2. BENICAR [Concomitant]
  3. HYDRALAZINE HCL [Concomitant]
  4. FINASTERIDE [Concomitant]
  5. VITAMINS [Concomitant]

REACTIONS (2)
  - BLOOD PRESSURE DECREASED [None]
  - INSOMNIA [None]
